FAERS Safety Report 10660150 (Version 1)
Quarter: 2014Q4

REPORT INFORMATION
  Report Type: Spontaneous
  Country: DK (occurrence: DK)
  Receive Date: 20141217
  Receipt Date: 20141217
  Transmission Date: 20150529
  Serious: Yes (Hospitalization)
  Sender: FDA-Public Use
  Company Number: PHHY2014DK159276

PATIENT
  Age: 24 Year
  Sex: Female
  Weight: 62 kg

DRUGS (1)
  1. LINDYNETTE [Suspect]
     Active Substance: ETHINYL ESTRADIOL\GESTODENE
     Indication: CONTRACEPTION
     Dosage: 1 DF, UNK
     Route: 048
     Dates: end: 20140201

REACTIONS (3)
  - Painful respiration [Unknown]
  - Haemoptysis [Recovered/Resolved]
  - Pulmonary embolism [Unknown]

NARRATIVE: CASE EVENT DATE: 20140201
